FAERS Safety Report 4384672-6 (Version None)
Quarter: 2004Q2

REPORT INFORMATION
  Report Type: 
  Country: None (occurrence: None)
  Receive Date: 20040621
  Receipt Date: 20040607
  Transmission Date: 20050107
  Serious: Yes (Death)
  Sender: FDA-Public Use
  Company Number: 2004038108

PATIENT
  Age: 37 Year
  Sex: Female

DRUGS (1)
  1. ZELDOX (CAPSULES)(ZIPRASIDONE) [Suspect]
     Indication: SCHIZOPHRENIA
     Dosage: 120 MG (60 MG 2 IN 1 D) ORAL
     Route: 048
     Dates: start: 20040601, end: 20040606

REACTIONS (2)
  - EPISTAXIS [None]
  - RED BLOOD CELL SEDIMENTATION RATE INCREASED [None]
